FAERS Safety Report 25614049 (Version 1)
Quarter: 2025Q3

REPORT INFORMATION
  Report Type: Spontaneous
  Country: EU (occurrence: EU)
  Receive Date: 20250728
  Receipt Date: 20250728
  Transmission Date: 20251020
  Serious: Yes (Death, Hospitalization, Other)
  Sender: PFIZER
  Company Number: EU-PFIZER INC-PV202500089979

PATIENT
  Age: 65 Year
  Sex: Female

DRUGS (2)
  1. PALBOCICLIB [Suspect]
     Active Substance: PALBOCICLIB
  2. LETROZOLE [Suspect]
     Active Substance: LETROZOLE

REACTIONS (5)
  - Death [Fatal]
  - Neutropenia [Unknown]
  - Pulmonary embolism [Unknown]
  - Abdominal pain [Unknown]
  - Pain in extremity [Unknown]
